FAERS Safety Report 9538809 (Version 1)
Quarter: 2013Q2

REPORT INFORMATION
  Report Type: Spontaneous
  Country: US (occurrence: None)
  Receive Date: 20130507
  Receipt Date: 20130507
  Transmission Date: 20140414
  Serious: Yes (Other)
  Sender: FDA-Public Use
  Company Number: PHEH2012US025649

PATIENT
  Age: 53 Year
  Sex: Female

DRUGS (4)
  1. AFINITOR [Suspect]
     Indication: BREAST CANCER METASTATIC
     Route: 048
     Dates: start: 20120918
  2. AROMASIN (EXEMESTANE) [Concomitant]
  3. AMBIEN (ZOLPIDEM TARTRATE) [Concomitant]
  4. PREDOZONE (TRIMETAZIDINE HYDROCHLORIDE) [Concomitant]

REACTIONS (3)
  - Oedema peripheral [None]
  - Oral pain [None]
  - Acne [None]
